FAERS Safety Report 22176553 (Version 1)
Quarter: 2023Q2

REPORT INFORMATION
  Report Type: Spontaneous
  Country: US (occurrence: US)
  Receive Date: 20230405
  Receipt Date: 20230405
  Transmission Date: 20230721
  Serious: No
  Sender: FDA-Public Use
  Company Number: US-drreddys-LIT/USA/23/0161988

PATIENT
  Age: 68 Year
  Sex: Male

DRUGS (14)
  1. ATORVASTATIN [Suspect]
     Active Substance: ATORVASTATIN
     Indication: Dyslipidaemia
  2. ATORVASTATIN [Suspect]
     Active Substance: ATORVASTATIN
     Dosage: 80 MG ONE HALF TABLET DAILY
  3. SIMVASTATIN [Suspect]
     Active Substance: SIMVASTATIN
     Indication: Dyslipidaemia
  4. OMEPRAZOLE [Suspect]
     Active Substance: OMEPRAZOLE
     Indication: Dyslipidaemia
  5. METFORMIN [Suspect]
     Active Substance: METFORMIN HYDROCHLORIDE
     Indication: Dyslipidaemia
  6. INSULIN GLARGINE [Suspect]
     Active Substance: INSULIN GLARGINE
     Indication: Dyslipidaemia
  7. INSULIN ASPART [Suspect]
     Active Substance: INSULIN ASPART
     Indication: Dyslipidaemia
  8. ENALAPRIL [Suspect]
     Active Substance: ENALAPRIL
     Indication: Dyslipidaemia
  9. ASPIRIN [Suspect]
     Active Substance: ASPIRIN
     Indication: Dyslipidaemia
  10. CHOLECALCIFEROL [Suspect]
     Active Substance: CHOLECALCIFEROL
     Indication: Dyslipidaemia
  11. DULOXETINE [Suspect]
     Active Substance: DULOXETINE
     Indication: Dyslipidaemia
  12. CYANOCOBALAMIN [Suspect]
     Active Substance: CYANOCOBALAMIN
     Indication: Dyslipidaemia
  13. GABAPENTIN [Suspect]
     Active Substance: GABAPENTIN
     Indication: Dyslipidaemia
  14. CLOTRIMAZOLE [Suspect]
     Active Substance: CLOTRIMAZOLE
     Indication: Dyslipidaemia

REACTIONS (2)
  - Drug eruption [Recovering/Resolving]
  - Product use in unapproved indication [Unknown]
